FAERS Safety Report 6047804-X (Version None)
Quarter: 2009Q1

REPORT INFORMATION
  Report Type: 
  Country: None (occurrence: None)
  Receive Date: 20090123
  Receipt Date: 20090113
  Transmission Date: 20090719
  Serious: Yes (Hospitalization)
  Sender: FDA-Public Use
  Company Number: FR-AMGEN-US328811

PATIENT
  Sex: Female

DRUGS (3)
  1. ENBREL [Suspect]
     Indication: RHEUMATOID ARTHRITIS
     Dosage: UNKNOWN
     Route: 058
     Dates: start: 20030501, end: 20080601
  2. NOVATREX [Concomitant]
     Indication: RHEUMATOID ARTHRITIS
     Dosage: UNKNOWN
     Route: 048
  3. HUMIRA [Concomitant]
     Route: 065
     Dates: start: 20060601, end: 20080301

REACTIONS (3)
  - DERMATITIS PSORIASIFORM [None]
  - DRUG INEFFECTIVE [None]
  - INFECTION [None]
